FAERS Safety Report 17703788 (Version 5)
Quarter: 2022Q1

REPORT INFORMATION
  Report Type: Spontaneous
  Country: US (occurrence: US)
  Receive Date: 20200424
  Receipt Date: 20220128
  Transmission Date: 20220423
  Serious: Yes (Other)
  Sender: FDA-Public Use
  Company Number: US-GILEAD-2020-0460165

PATIENT
  Age: 55 Year
  Sex: Male
  Weight: 78.005 kg

DRUGS (55)
  1. VIREAD [Suspect]
     Active Substance: TENOFOVIR DISOPROXIL FUMARATE
     Indication: Product used for unknown indication
     Route: 065
  2. TRUVADA [Suspect]
     Active Substance: EMTRICITABINE\TENOFOVIR DISOPROXIL FUMARATE
     Indication: HIV infection
     Dosage: UNK
     Route: 048
     Dates: start: 2005, end: 20190404
  3. ATRIPLA [Suspect]
     Active Substance: EFAVIRENZ\EMTRICITABINE\TENOFOVIR DISOPROXIL FUMARATE
     Indication: HIV infection
     Dosage: UNK
     Route: 048
     Dates: start: 20090729, end: 20100519
  4. BIKTARVY [Concomitant]
     Active Substance: BICTEGRAVIR SODIUM\EMTRICITABINE\TENOFOVIR ALAFENAMIDE FUMARATE
  5. FORTEO [Concomitant]
     Active Substance: TERIPARATIDE
  6. FOSAMAX [Concomitant]
     Active Substance: ALENDRONATE SODIUM
  7. VITAMIN D NOS [Concomitant]
     Active Substance: VITAMIN D NOS
  8. CLONAZEPAM [Concomitant]
     Active Substance: CLONAZEPAM
  9. VERAPAMIL [Concomitant]
     Active Substance: VERAPAMIL HYDROCHLORIDE
  10. GABAPENTIN [Concomitant]
     Active Substance: GABAPENTIN
  11. MORPHINE [Concomitant]
     Active Substance: MORPHINE
  12. ESZOPICLONE [Concomitant]
     Active Substance: ESZOPICLONE
  13. LUNESTA [Concomitant]
     Active Substance: ESZOPICLONE
  14. ACETAMINOPHEN [Concomitant]
     Active Substance: ACETAMINOPHEN
  15. ACYCLOVIR [Concomitant]
     Active Substance: ACYCLOVIR
  16. ATORVASTATIN [Concomitant]
     Active Substance: ATORVASTATIN
  17. VANCOMYCIN [Concomitant]
     Active Substance: VANCOMYCIN
  18. COMBIVIR [Concomitant]
     Active Substance: LAMIVUDINE\ZIDOVUDINE
  19. CRIXIVAN [Concomitant]
     Active Substance: INDINAVIR SULFATE
  20. INTELENCE [Concomitant]
     Active Substance: ETRAVIRINE
  21. ISENTRESS [Concomitant]
     Active Substance: RALTEGRAVIR POTASSIUM
  22. REYATAZ [Concomitant]
     Active Substance: ATAZANAVIR SULFATE
  23. SELZENTRY [Concomitant]
     Active Substance: MARAVIROC
  24. SUSTIVA [Concomitant]
     Active Substance: EFAVIRENZ
  25. VIRACEPT [Concomitant]
     Active Substance: NELFINAVIR MESYLATE
  26. NORVIR [Concomitant]
     Active Substance: RITONAVIR
  27. LEVOFLOXACIN [Concomitant]
     Active Substance: LEVOFLOXACIN
  28. LOSARTAN POTASSIUM [Concomitant]
     Active Substance: LOSARTAN POTASSIUM
  29. DEMEROL [Concomitant]
     Active Substance: MEPERIDINE HYDROCHLORIDE
  30. HYZAAR [Concomitant]
     Active Substance: HYDROCHLOROTHIAZIDE\LOSARTAN POTASSIUM
  31. RAMIPRIL [Concomitant]
     Active Substance: RAMIPRIL
  32. DICLOFENAC [Concomitant]
     Active Substance: DICLOFENAC
  33. CIPROFLOXACIN [Concomitant]
     Active Substance: CIPROFLOXACIN
  34. XIFAXAN [Concomitant]
     Active Substance: RIFAXIMIN
  35. SUCRAID [Concomitant]
     Active Substance: SACROSIDASE
  36. FLAGYL [Concomitant]
     Active Substance: METRONIDAZOLE\METRONIDAZOLE HYDROCHLORIDE
  37. VANTIN [Concomitant]
     Active Substance: CEFPODOXIME PROXETIL
  38. ONDANSETRON [Concomitant]
     Active Substance: ONDANSETRON
  39. IBUPROFEN [Concomitant]
     Active Substance: IBUPROFEN
  40. NAPROXEN [Concomitant]
     Active Substance: NAPROXEN
  41. VIDEX EC [Concomitant]
     Active Substance: DIDANOSINE
  42. VALACYCLOVIR [Concomitant]
     Active Substance: VALACYCLOVIR HYDROCHLORIDE
  43. DOXYCYCLINE HYCLATE [Concomitant]
     Active Substance: DOXYCYCLINE HYCLATE
  44. LEVOCETIRIZINE [Concomitant]
     Active Substance: LEVOCETIRIZINE
  45. HALOBETASOL PROP [Concomitant]
  46. CLINDAMYCIN [Concomitant]
     Active Substance: CLINDAMYCIN
  47. OXYCODONE [Concomitant]
     Active Substance: OXYCODONE
  48. TAMSULOSIN [Concomitant]
     Active Substance: TAMSULOSIN
  49. ACETAMINOPHEN\HYDROCODONE [Concomitant]
     Active Substance: ACETAMINOPHEN\HYDROCODONE
  50. TAMIFLU [Concomitant]
     Active Substance: OSELTAMIVIR PHOSPHATE
  51. AZITHROMYCIN [Concomitant]
     Active Substance: AZITHROMYCIN
  52. FLUCONAZOLE [Concomitant]
     Active Substance: FLUCONAZOLE
  53. CORDRAN [Concomitant]
     Active Substance: FLURANDRENOLIDE
  54. ZYVOX [Concomitant]
     Active Substance: LINEZOLID
  55. VIAGRA [Concomitant]
     Active Substance: SILDENAFIL CITRATE

REACTIONS (19)
  - Fracture [Unknown]
  - Osteomalacia [Unknown]
  - Osteonecrosis [Unknown]
  - Chronic kidney disease [Unknown]
  - Osteoporosis [Not Recovered/Not Resolved]
  - Pathological fracture [Not Recovered/Not Resolved]
  - Bone loss [Unknown]
  - Bone density decreased [Unknown]
  - Arthralgia [Unknown]
  - Dizziness [Unknown]
  - Anxiety [Not Recovered/Not Resolved]
  - Depression [Not Recovered/Not Resolved]
  - Pain [Not Recovered/Not Resolved]
  - Emotional distress [Not Recovered/Not Resolved]
  - Economic problem [Not Recovered/Not Resolved]
  - Renal tubular dysfunction [Unknown]
  - Osteopenia [Unknown]
  - Blood creatinine increased [Unknown]
  - Nausea [Unknown]

NARRATIVE: CASE EVENT DATE: 20180401
